FAERS Safety Report 8585342-0 (Version None)
Quarter: 2012Q3

REPORT INFORMATION
  Report Type: 
  Country: None (occurrence: None)
  Receive Date: 20120810
  Receipt Date: 20120802
  Transmission Date: 20120928
  Serious: Yes (Other)
  Sender: FDA-Public Use
  Company Number: JP-ASTELLAS-2012JP007418

PATIENT
  Age: 32 Year
  Sex: Male

DRUGS (3)
  1. MYRBETRIQ [Suspect]
     Indication: HYPERTONIC BLADDER
     Dosage: 50 MG, UID/QD
     Route: 048
  2. VESICARE [Suspect]
     Indication: HYPERTONIC BLADDER
     Dosage: UNK
     Route: 048
  3. URITOS [Concomitant]
     Dosage: UNK
     Route: 048

REACTIONS (3)
  - MUSCLE SPASTICITY [None]
  - HYPERTONIC BLADDER [None]
  - DRUG INEFFECTIVE [None]
